FAERS Safety Report 17954729 (Version 1)
Quarter: 2020Q2

REPORT INFORMATION
  Report Type: Spontaneous
  Country: US (occurrence: US)
  Receive Date: 20200626
  Receipt Date: 20200626
  Transmission Date: 20200714
  Serious: Yes (Death)
  Sender: FDA-Public Use
  Company Number: None

PATIENT
  Age: 57 Year
  Sex: Male

DRUGS (11)
  1. ALPRAZOLAM. [Concomitant]
     Active Substance: ALPRAZOLAM
  2. AMLODIPINE [Concomitant]
     Active Substance: AMLODIPINE BESYLATE
  3. METOPROLOL TARTRATE. [Concomitant]
     Active Substance: METOPROLOL TARTRATE
  4. HUMIRA [Suspect]
     Active Substance: ADALIMUMAB
     Indication: CROHN^S DISEASE
     Route: 058
     Dates: start: 201902, end: 20200607
  5. BUDESONIDE. [Concomitant]
     Active Substance: BUDESONIDE
  6. IBANDRONATE [Concomitant]
     Active Substance: IBANDRONATE SODIUM
  7. HYDROCHLOROT [Concomitant]
     Active Substance: HYDROCHLOROTHIAZIDE
  8. MESALAMINE. [Concomitant]
     Active Substance: MESALAMINE
  9. OMEPRAZOLE. [Concomitant]
     Active Substance: OMEPRAZOLE
  10. PREDNISONE. [Concomitant]
     Active Substance: PREDNISONE
  11. WARFARIN [Concomitant]
     Active Substance: WARFARIN

REACTIONS (1)
  - Death [None]

NARRATIVE: CASE EVENT DATE: 20200607
